FAERS Safety Report 5170536-7 (Version None)
Quarter: 2006Q4

REPORT INFORMATION
  Report Type: 
  Country: None (occurrence: None)
  Receive Date: 20061204
  Receipt Date: 20061129
  Transmission Date: 20070319
  Serious: Yes (Hospitalization)
  Sender: FDA-Public Use
  Company Number: TPG2006A00544

PATIENT
  Age: 47 Year
  Sex: Male

DRUGS (1)
  1. LANSOPRAZOLE [Suspect]
     Indication: GASTROOESOPHAGEAL REFLUX DISEASE
     Dosage: 30 MG (15 MG,2 IN 1 D)
     Route: 048
     Dates: start: 20030101

REACTIONS (1)
  - NO ADVERSE EFFECT [None]
